FAERS Safety Report 7017950-2 (Version None)
Quarter: 2010Q3

REPORT INFORMATION
  Report Type: 
  Country: None (occurrence: None)
  Receive Date: 20100922
  Receipt Date: 20100906
  Transmission Date: 20110219
  Serious: Yes (Life-Threatening, Hospitalization, Disabling)
  Sender: FDA-Public Use
  Company Number: 1000014183

PATIENT
  Sex: Male
  Weight: 3.05 kg

DRUGS (5)
  1. DINOPROSTONE (DINOPROSTONE) (VAGINAL SUPPOSITORY) [Suspect]
     Dosage: 10 MG, ONCE; TRANSPLACENTAL
     Route: 064
     Dates: start: 20100516, end: 20100516
  2. ASPIRIN [Concomitant]
  3. FEMIBION [Concomitant]
  4. IRON [Concomitant]
  5. RHOPHYLAC [Concomitant]

REACTIONS (12)
  - APGAR SCORE LOW [None]
  - BRADYCARDIA NEONATAL [None]
  - BRAIN OEDEMA [None]
  - CAESAREAN SECTION [None]
  - CEREBRAL PALSY [None]
  - DILATATION VENTRICULAR [None]
  - ECHOCARDIOGRAM ABNORMAL [None]
  - HYPOTHERMIA NEONATAL [None]
  - MATERNAL DRUGS AFFECTING FOETUS [None]
  - NEONATAL ASPHYXIA [None]
  - PERIVENTRICULAR LEUKOMALACIA [None]
  - RIGHT ATRIAL DILATATION [None]
